FAERS Safety Report 24055896 (Version 2)
Quarter: 2024Q3

REPORT INFORMATION
  Report Type: Spontaneous
  Country: DE (occurrence: DE)
  Receive Date: 20240705
  Receipt Date: 20240709
  Transmission Date: 20241016
  Serious: Yes (Other)
  Sender: SANDOZ
  Company Number: DE-002147023-NVSC2020DE275435

PATIENT
  Sex: Female
  Weight: 59 kg

DRUGS (6)
  1. FULVESTRANT [Suspect]
     Active Substance: FULVESTRANT
     Indication: Hormone receptor positive HER2 negative breast cancer
     Dosage: 500 MG, Q4W (DAILY DOSE) (ONGOING)
     Route: 030
     Dates: start: 20190514, end: 20201222
  2. KISQALI [Suspect]
     Active Substance: RIBOCICLIB
     Indication: Hormone receptor positive HER2 negative breast cancer
     Dosage: 200 MG, QD (SCHEMA 21 DAYS INTAKE, 7 DAYS PAUSE)
     Route: 048
     Dates: start: 20190515, end: 20190709
  3. KISQALI [Suspect]
     Active Substance: RIBOCICLIB
     Dosage: 400 MG, QD (ONGOING) (SCHEMA 21 DAYS INTAKE, 7 DAYS PAUSE) (LAST ADMINISTRATION DOSE DATE 15 DEC 202
     Route: 048
     Dates: start: 20190710, end: 20201215
  4. XGEVA [Suspect]
     Active Substance: DENOSUMAB
     Dosage: 120 MG, 28D (Q28D)
     Route: 058
     Dates: start: 20190606, end: 20210120
  5. XGEVA [Suspect]
     Active Substance: DENOSUMAB
     Indication: Metastases to bone
     Dosage: UNK
     Route: 065
  6. AFINITOR [Concomitant]
     Active Substance: EVEROLIMUS
     Indication: Hormone receptor positive HER2 negative breast cancer
     Dosage: 5 MG, QD
     Route: 048
     Dates: start: 20210121, end: 20210129

REACTIONS (1)
  - Osteonecrosis of jaw [Recovering/Resolving]

NARRATIVE: CASE EVENT DATE: 20200807
